FAERS Safety Report 25466418 (Version 3)
Quarter: 2025Q3

REPORT INFORMATION
  Report Type: Report from Study
  Country: US (occurrence: US)
  Receive Date: 20250623
  Receipt Date: 20250729
  Transmission Date: 20251021
  Serious: Yes (Other)
  Sender: ACADIA PHARMACEUTICALS
  Company Number: US-ACADIA PHARMACEUTICALS INC.-ACA-2025-PIM-007258

PATIENT
  Sex: Male

DRUGS (2)
  1. NUPLAZID [Suspect]
     Active Substance: PIMAVANSERIN TARTRATE
     Indication: Parkinson^s disease psychosis
     Dosage: 34 MILLIGRAM, QD
     Route: 048
     Dates: start: 20250509, end: 20250614
  2. CARBIDOPA\LEVODOPA [Concomitant]
     Active Substance: CARBIDOPA\LEVODOPA

REACTIONS (7)
  - Hallucination, visual [Recovering/Resolving]
  - Anxiety [Recovering/Resolving]
  - Restlessness [Recovering/Resolving]
  - Frequent bowel movements [Recovering/Resolving]
  - Dysarthria [Recovering/Resolving]
  - Screaming [Recovering/Resolving]
  - Condition aggravated [Recovering/Resolving]
